FAERS Safety Report 6707734-4 (Version None)
Quarter: 2010Q2

REPORT INFORMATION
  Report Type: 
  Country: None (occurrence: None)
  Receive Date: 20100503
  Receipt Date: 20090908
  Transmission Date: 20101027
  Serious: No
  Sender: FDA-Public Use
  Company Number: US-ASTRAZENECA-2009SE12000

PATIENT
  Age: 78 Year
  Sex: Female
  Weight: 44.5 kg

DRUGS (5)
  1. NEXIUM [Suspect]
     Indication: GASTROOESOPHAGEAL REFLUX DISEASE
     Route: 048
     Dates: start: 20090801
  2. CRESTOR [Suspect]
     Route: 048
  3. VITAMINS [Concomitant]
  4. CALCIUM CARBONATE [Concomitant]
  5. AVAPRO [Concomitant]

REACTIONS (4)
  - CONSTIPATION [None]
  - DYSPEPSIA [None]
  - ERUCTATION [None]
  - FLATULENCE [None]
